FAERS Safety Report 24758770 (Version 1)
Quarter: 2024Q4

REPORT INFORMATION
  Report Type: Spontaneous
  Country: US (occurrence: US)
  Receive Date: 20241220
  Receipt Date: 20241220
  Transmission Date: 20250114
  Serious: No
  Sender: BAYER HEALTHCARE LLC
  Company Number: US-BAYER-2024A180277

PATIENT

DRUGS (1)
  1. ALEVE BACK AND MUSCLE PAIN [Suspect]
     Active Substance: NAPROXEN SODIUM
     Indication: Multiple sclerosis
     Dosage: UNK

REACTIONS (1)
  - Drug effective for unapproved indication [Unknown]
